FAERS Safety Report 23356210 (Version 3)
Quarter: 2024Q2

REPORT INFORMATION
  Report Type: Report from Study
  Country: US (occurrence: US)
  Receive Date: 20240102
  Receipt Date: 20240422
  Transmission Date: 20240716
  Serious: No
  Sender: FDA-Public Use
  Company Number: US-AstraZeneca-CH-00535622A

PATIENT
  Sex: Male

DRUGS (1)
  1. ULTOMIRIS [Suspect]
     Active Substance: RAVULIZUMAB-CWVZ
     Indication: Myasthenia gravis
     Dosage: UNK, UNK, EVERY 8 WEEKS
     Route: 042

REACTIONS (4)
  - Muscular weakness [Recovering/Resolving]
  - Oral discomfort [Recovered/Resolved]
  - Oral pain [Not Recovered/Not Resolved]
  - Fatigue [Unknown]
